FAERS Safety Report 18146262 (Version 1)
Quarter: 2020Q3

REPORT INFORMATION
  Report Type: Not Available
  Country: US (occurrence: US)
  Receive Date: 20200813
  Receipt Date: 20200813
  Transmission Date: 20201103
  Serious: Yes (Hospitalization, Disabling)
  Sender: FDA-Public Use
  Company Number: US-C B FLEET CO INC-202005-US-001819

PATIENT
  Age: 30 Year
  Sex: Female

DRUGS (1)
  1. NIX COMPLETE MAXIMUM STRENGTH LICE ELIMINATION [Suspect]
     Active Substance: PERMETHRIN
     Indication: LICE INFESTATION
     Dosage: SECOND TREATMENT.
     Route: 061

REACTIONS (4)
  - Eye swelling [Recovered/Resolved]
  - Brachial plexus injury [Not Recovered/Not Resolved]
  - Alopecia [Unknown]
  - Accidental exposure to product [None]
